FAERS Safety Report 8480085-6 (Version None)
Quarter: 2012Q2

REPORT INFORMATION
  Report Type: 
  Country: None (occurrence: None)
  Receive Date: 20120629
  Receipt Date: 20120618
  Transmission Date: 20120825
  Serious: Yes (Hospitalization)
  Sender: FDA-Public Use
  Company Number: SE-ELI_LILLY_AND_COMPANY-SE201205008591

PATIENT
  Sex: Male

DRUGS (10)
  1. ZYPREXA [Suspect]
     Dosage: 5 MG, QD
     Route: 048
     Dates: start: 20120419, end: 20120508
  2. VENLAFAXINE [Concomitant]
  3. COMBIVIR [Concomitant]
  4. TEGRETOL [Concomitant]
  5. OXAZEPAM [Concomitant]
  6. BACTRIM [Concomitant]
     Indication: MENTAL DISORDER
     Dosage: 1 DF, QD
     Route: 048
     Dates: start: 20120417, end: 20120427
  7. DIAZEPAM [Concomitant]
  8. ACETAMINOPHEN W/ CODEINE [Concomitant]
  9. DIAZEPAM [Concomitant]
  10. ZOPIKLON [Concomitant]

REACTIONS (6)
  - BLOOD LACTATE DEHYDROGENASE INCREASED [None]
  - GAMMA-GLUTAMYLTRANSFERASE INCREASED [None]
  - BLOOD ALKALINE PHOSPHATASE INCREASED [None]
  - ASPARTATE AMINOTRANSFERASE INCREASED [None]
  - EOSINOPHILIA [None]
  - ALANINE AMINOTRANSFERASE INCREASED [None]
